FAERS Safety Report 7969032-0 (Version None)
Quarter: 2011Q4

REPORT INFORMATION
  Report Type: 
  Country: None (occurrence: None)
  Receive Date: 20111209
  Receipt Date: 20111202
  Transmission Date: 20120403
  Serious: Yes (Hospitalization)
  Sender: FDA-Public Use
  Company Number: FR-ABBOTT-11P-056-0880691-00

PATIENT
  Sex: Female

DRUGS (8)
  1. AMLODIPINE BESYLATE [Suspect]
     Indication: PRODUCT USED FOR UNKNOWN INDICATION
     Route: 048
     Dates: end: 20100417
  2. PERINDOPRIL ERBUMINE [Suspect]
     Indication: PRODUCT USED FOR UNKNOWN INDICATION
     Dosage: ONCE DAILY; REGIMEN #1
     Route: 048
     Dates: end: 20100417
  3. PERINDOPRIL ERBUMINE [Suspect]
     Dosage: ONCE DAILY; REGIMEN #2
     Route: 048
     Dates: start: 20110428, end: 20110704
  4. PERINDOPRIL ERBUMINE [Suspect]
     Dosage: FOUR TIMES DAILY; REGIMEN #3
     Route: 048
     Dates: start: 20110713
  5. BISOPROLOL FUMARATE [Concomitant]
     Indication: PRODUCT USED FOR UNKNOWN INDICATION
  6. SIMVASTATIN [Concomitant]
     Indication: PRODUCT USED FOR UNKNOWN INDICATION
  7. PREVISCAN [Concomitant]
     Indication: PRODUCT USED FOR UNKNOWN INDICATION
  8. LASIX [Suspect]
     Indication: PRODUCT USED FOR UNKNOWN INDICATION
     Route: 048
     Dates: start: 20100101, end: 20100417

REACTIONS (5)
  - ANAEMIA FOLATE DEFICIENCY [None]
  - RENAL FAILURE ACUTE [None]
  - HYPOTENSION [None]
  - BLOOD PARATHYROID HORMONE INCREASED [None]
  - MALAISE [None]
